FAERS Safety Report 4964215-6 (Version None)
Quarter: 2006Q1

REPORT INFORMATION
  Report Type: 
  Country: None (occurrence: None)
  Receive Date: 20060331
  Receipt Date: 20060317
  Transmission Date: 20060701
  Serious: Yes (Hospitalization)
  Sender: FDA-Public Use
  Company Number: 2006-139988-NL

PATIENT
  Age: 26 Year
  Sex: Female
  Weight: 47.6 kg

DRUGS (2)
  1. NUVARING [Suspect]
     Indication: CONTRACEPTION
     Dosage: VAGINAL, 3 WKS IN, 1 WK OUT
     Route: 067
     Dates: start: 20050101, end: 20050101
  2. NUVARING [Suspect]
     Indication: CONTRACEPTION
     Dosage: VAGINAL, 3 WKS IN, 1 WK OUT
     Route: 067
     Dates: start: 20060101, end: 20060301

REACTIONS (6)
  - ABDOMINAL PAIN UPPER [None]
  - DIARRHOEA [None]
  - DRUG EXPOSURE DURING PREGNANCY [None]
  - PREGNANCY WITH CONTRACEPTIVE DEVICE [None]
  - PYREXIA [None]
  - WHITE BLOOD CELL COUNT INCREASED [None]
